FAERS Safety Report 21917835 (Version 2)
Quarter: 2023Q1

REPORT INFORMATION
  Report Type: Spontaneous
  Country: US (occurrence: US)
  Receive Date: 20230127
  Receipt Date: 20230202
  Transmission Date: 20230418
  Serious: No
  Sender: FDA-Public Use
  Company Number: US-TEVA-2023-US-2845989

PATIENT
  Age: 30 Year
  Sex: Male

DRUGS (2)
  1. AJOVY [Suspect]
     Active Substance: FREMANEZUMAB-VFRM
     Indication: Product used for unknown indication
     Dosage: FORM STRENGTH: 225/1.5 MG/ML
     Route: 065
  2. AJOVY [Suspect]
     Active Substance: FREMANEZUMAB-VFRM

REACTIONS (5)
  - Accident at work [Unknown]
  - Headache [Unknown]
  - Legal problem [Unknown]
  - Product use issue [Unknown]
  - Loss of employment [Unknown]

NARRATIVE: CASE EVENT DATE: 20230101
